FAERS Safety Report 10776974 (Version 1)
Quarter: 2015Q1

REPORT INFORMATION
  Report Type: Spontaneous
  Country: US (occurrence: None)
  Receive Date: 20150209
  Receipt Date: 20150209
  Transmission Date: 20150721
  Serious: Yes (Hospitalization, Disabling)
  Sender: FDA-Public Use
  Company Number: None

PATIENT
  Age: 32 Year
  Sex: Male
  Weight: 62.14 kg

DRUGS (1)
  1. PRACTI-PRODUCTS [Suspect]
     Active Substance: UNSPECIFIED INGREDIENT
     Indication: TREMOR
     Dosage: IV BED, 500 BAG IN ONE DAY, INTO A VEIN
     Route: 042

REACTIONS (21)
  - Fatigue [None]
  - Tremor [None]
  - Dyspnoea [None]
  - Anxiety [None]
  - Chills [None]
  - Injection site erythema [None]
  - Abdominal pain [None]
  - Abnormal dreams [None]
  - Headache [None]
  - Injection site bruising [None]
  - Epistaxis [None]
  - Insomnia [None]
  - Dysuria [None]
  - Pruritus [None]
  - Dysgeusia [None]
  - Penile discharge [None]
  - Rash generalised [None]
  - Hyperhidrosis [None]
  - Dry mouth [None]
  - Dizziness [None]
  - Visual impairment [None]

NARRATIVE: CASE EVENT DATE: 20141204
